FAERS Safety Report 6919095-6 (Version None)
Quarter: 2010Q3

REPORT INFORMATION
  Report Type: 
  Country: None (occurrence: None)
  Receive Date: 20100727
  Receipt Date: 20080304
  Transmission Date: 20110219
  Serious: Yes (Other)
  Sender: FDA-Public Use
  Company Number: CAR-2008-010

PATIENT
  Age: 70 Year
  Sex: Male

DRUGS (1)
  1. CARAFATE [Suspect]
     Indication: GASTRIC ULCER
     Dosage: 10 ML, TID, ORAL
     Route: 048

REACTIONS (4)
  - BLOOD GLUCOSE ABNORMAL [None]
  - DIZZINESS [None]
  - OESOPHAGEAL PAIN [None]
  - VISION BLURRED [None]
